FAERS Safety Report 8015843-5 (Version None)
Quarter: 2011Q4

REPORT INFORMATION
  Report Type: 
  Country: None (occurrence: None)
  Receive Date: 20111230
  Receipt Date: 20111227
  Transmission Date: 20120403
  Serious: Yes (Other)
  Sender: FDA-Public Use
  Company Number: FR-ROCHE-1026417

PATIENT
  Sex: Female
  Weight: 50 kg

DRUGS (2)
  1. XOLAIR [Suspect]
     Indication: ASTHMA
     Dates: start: 20110204
  2. XOLAIR [Suspect]
     Dates: start: 20110218

REACTIONS (1)
  - VISION BLURRED [None]
